FAERS Safety Report 21194874 (Version 2)
Quarter: 2022Q3

REPORT INFORMATION
  Report Type: Spontaneous
  Country: IT (occurrence: IT)
  Receive Date: 20220810
  Receipt Date: 20220823
  Transmission Date: 20221026
  Serious: Yes (Hospitalization, Other)
  Sender: FDA-Public Use
  Company Number: IT-SUN PHARMACEUTICAL INDUSTRIES LTD-2022RR-348397

PATIENT
  Age: 23 Year
  Sex: Female

DRUGS (4)
  1. LORAZEPAM [Suspect]
     Active Substance: LORAZEPAM
     Indication: Drug abuse
     Dosage: PHARMACEUTICAL FORM, STRENGTH AND NUMBER OF DOSAGE UNITS NOT AVAILABLE
     Route: 048
     Dates: start: 20220402, end: 20220402
  2. SERTRALINE [Suspect]
     Active Substance: SERTRALINE HYDROCHLORIDE
     Indication: Drug abuse
     Dosage: 16 CP, THE DOSAGE IS NOT KNOWN
     Route: 048
     Dates: end: 20220403
  3. BETAMETHASONE SODIUM PHOSPHATE [Suspect]
     Active Substance: BETAMETHASONE SODIUM PHOSPHATE
     Indication: Drug abuse
     Dosage: NUMBER OF CP TAKEN AND DOSAGE NOT AVAILABLE
     Route: 048
     Dates: start: 20220402, end: 20220402
  4. IBUPROFEN [Suspect]
     Active Substance: IBUPROFEN
     Indication: Drug abuse
     Dosage: NUMBER OF CP TAKEN AND DOSAGE NOT AVAILABLE (ONE BLISTER)
     Route: 048
     Dates: start: 20220402, end: 20220402

REACTIONS (5)
  - Tremor [Recovering/Resolving]
  - Vomiting [Recovering/Resolving]
  - Tachycardia [Recovering/Resolving]
  - Aphasia [Recovering/Resolving]
  - Drug abuse [Recovered/Resolved]

NARRATIVE: CASE EVENT DATE: 20220402
